FAERS Safety Report 6900291-9 (Version None)
Quarter: 2010Q3

REPORT INFORMATION
  Report Type: 
  Country: None (occurrence: None)
  Receive Date: 20100708
  Receipt Date: 20100127
  Transmission Date: 20110219
  Serious: Yes (Disabling)
  Sender: FDA-Public Use
  Company Number: 2010012235

PATIENT
  Age: 22 Year
  Sex: Male
  Weight: 83.9 kg

DRUGS (4)
  1. CHANTIX [Suspect]
     Dosage: 0.5 MG, 1X/DAY, ORAL
     Route: 048
     Dates: start: 20100125, end: 20100127
  2. LISINOPRIL [Concomitant]
  3. HYDROCHLOROTHIAZIDE (HYDROCHLOROTHIAZIDE0 [Concomitant]
  4. TOPROL-XL [Concomitant]

REACTIONS (3)
  - LOSS OF CONSCIOUSNESS [None]
  - MOOD SWINGS [None]
  - SELF INJURIOUS BEHAVIOUR [None]
